FAERS Safety Report 7026996-X (Version None)
Quarter: 2010Q4

REPORT INFORMATION
  Report Type: 
  Country: None (occurrence: None)
  Receive Date: 20101004
  Receipt Date: 20100924
  Transmission Date: 20110411
  Serious: Yes (Disabling)
  Sender: FDA-Public Use
  Company Number: DE-NAPPMUNDI-DEU-2010-0006224

PATIENT
  Sex: Female
  Weight: 62 kg

DRUGS (10)
  1. NORSPAN 10 UG/H [Suspect]
     Indication: PRODUCT USED FOR UNKNOWN INDICATION
     Dosage: 10 MCG, SEE TEXT
     Route: 062
     Dates: start: 20100428, end: 20100502
  2. DULCOLAX [Concomitant]
     Indication: GASTROINTESTINAL MALFORMATION
     Dosage: UNK
  3. LISINOPRIL [Concomitant]
  4. PLAVIX [Concomitant]
  5. MAGNESIUM [Concomitant]
  6. EZETROL [Concomitant]
  7. ASPIRIN [Concomitant]
  8. CONCOR COR [Concomitant]
  9. TILIDIN [Concomitant]
  10. EUTHYROX [Concomitant]

REACTIONS (5)
  - BALANCE DISORDER [None]
  - CONFUSIONAL STATE [None]
  - CONSTIPATION [None]
  - DIZZINESS [None]
  - URINARY RETENTION [None]
